FAERS Safety Report 24535380 (Version 1)
Quarter: 2024Q4

REPORT INFORMATION
  Report Type: Spontaneous
  Country: US (occurrence: None)
  Receive Date: 20241021
  Receipt Date: 20241021
  Transmission Date: 20250114
  Serious: No
  Sender: Public
  Company Number: None

PATIENT

DRUGS (3)
  1. CARAFATE [Suspect]
     Active Substance: SUCRALFATE
  2. PROTONIX [Suspect]
     Active Substance: PANTOPRAZOLE SODIUM
  3. PEPCID [Suspect]
     Active Substance: FAMOTIDINE

REACTIONS (1)
  - Drug ineffective [None]
